FAERS Safety Report 12479096 (Version 2)
Quarter: 2016Q2

REPORT INFORMATION
  Report Type: Report from Study
  Country: JP (occurrence: JP)
  Receive Date: 20160620
  Receipt Date: 20160623
  Transmission Date: 20160815
  Serious: Yes (Other)
  Sender: FDA-Public Use
  Company Number: JP-ACCORD-041549

PATIENT
  Age: 62 Year
  Sex: Female

DRUGS (3)
  1. CLOPIDOGREL [Suspect]
     Active Substance: CLOPIDOGREL BISULFATE
     Indication: MYOCARDIAL INFARCTION
  2. CARBOPLATIN. [Concomitant]
     Active Substance: CARBOPLATIN
     Indication: OVARIAN CANCER
     Dosage: 3 WEEKS, 3 COURSES; PROTOCOL FINISHED
  3. PACLITAXEL/PACLITAXEL LIPOSOME [Interacting]
     Active Substance: PACLITAXEL
     Indication: OVARIAN CANCER
     Dosage: 3 WEEKS, 3 COURSES; THE DOSE WAS 86.3 MG PER WEEK; PROTOCOL FINISHED

REACTIONS (3)
  - Febrile neutropenia [Unknown]
  - Leukopenia [Unknown]
  - Drug interaction [Unknown]
